FAERS Safety Report 17309296 (Version 2)
Quarter: 2020Q1

REPORT INFORMATION
  Report Type: Spontaneous
  Country: US (occurrence: US)
  Receive Date: 20200123
  Receipt Date: 20200204
  Transmission Date: 20200409
  Serious: Yes (Life-Threatening, Hospitalization, Other)
  Sender: FDA-Public Use
  Company Number: US-HIKMA PHARMACEUTICALS USA INC.-US-H14001-20-50420

PATIENT
  Age: 67 Year
  Sex: Male

DRUGS (6)
  1. MIDAZOLAM HYDROCHLORIDE. [Suspect]
     Active Substance: MIDAZOLAM HYDROCHLORIDE
     Indication: SEDATION
     Route: 065
  2. HALOPERIDOL. [Suspect]
     Active Substance: HALOPERIDOL
     Indication: DELIRIUM
     Dosage: UP TO 25 MG ENTERALLY EVERY 12 HOURS AND 5 MG INTRAVENOUSLY EVERY 6 HOURS RESPECTIVELY
  3. HALOPERIDOL. [Suspect]
     Active Substance: HALOPERIDOL
     Dosage: UP TO 25 MG ENTERALLY EVERY 12 HOURS AND 5 MG INTRAVENOUSLY EVERY 6 HOURS RESPECTIVELY
     Route: 042
  4. HALOPERIDOL. [Suspect]
     Active Substance: HALOPERIDOL
     Dosage: UP TO 25 MG ENTERALLY EVERY 12 HOURS AND 5 MG INTRAVENOUSLY EVERY 6 HOURS RESPECTIVELY () ; AS NE...
  5. QUETIAPINE. [Suspect]
     Active Substance: QUETIAPINE
     Indication: DELIRIUM
     Route: 065
  6. HYDROMORPHONE [Suspect]
     Active Substance: HYDROMORPHONE
     Indication: SEDATION
     Dosage: ()
     Route: 065

REACTIONS (2)
  - Delirium [Unknown]
  - Parkinson^s disease [Recovered/Resolved]
